FAERS Safety Report 17871054 (Version 1)
Quarter: 2020Q2

REPORT INFORMATION
  Report Type: Spontaneous
  Country: US (occurrence: US)
  Receive Date: 20200605
  Receipt Date: 20200605
  Transmission Date: 20200714
  Serious: Yes (Hospitalization)
  Sender: FDA-Public Use
  Company Number: None

PATIENT
  Sex: Female

DRUGS (8)
  1. CREON [Concomitant]
     Active Substance: PANCRELIPASE AMYLASE\PANCRELIPASE LIPASE\PANCRELIPASE PROTEASE
  2. TOBRAMYCIN. [Concomitant]
     Active Substance: TOBRAMYCIN
  3. VANCOMYCIN [Concomitant]
     Active Substance: VANCOMYCIN
  4. ZOSYN [Concomitant]
     Active Substance: PIPERACILLIN SODIUM\TAZOBACTAM SODIUM
  5. TACROLIMUS 1 MG CAP [Suspect]
     Active Substance: TACROLIMUS
     Indication: RENAL TRANSPLANT
     Dosage: ?          OTHER DOSE:4 CAPS;?
     Route: 048
     Dates: start: 20200101
  6. MYCOPHENOLATE 250MG CAP [Suspect]
     Active Substance: MYCOPHENOLATE MOFETIL
     Indication: RENAL TRANSPLANT
     Dosage: ?          OTHER DOSE:2 CAPS - 1 CAP;OTHER FREQUENCY:QAM-QPM;?
     Route: 048
     Dates: start: 20200131
  7. CAYSTON [Concomitant]
     Active Substance: AZTREONAM
  8. BOOST BREEZE [Concomitant]

REACTIONS (1)
  - Hospitalisation [None]
